FAERS Safety Report 4840402-2 (Version None)
Quarter: 2005Q4

REPORT INFORMATION
  Report Type: 
  Country: None (occurrence: None)
  Receive Date: 20051024
  Receipt Date: 20050726
  Transmission Date: 20060501
  Serious: No
  Sender: FDA-Public Use
  Company Number: USA-2005-0020874

PATIENT
  Age: 54 Year
  Sex: Female

DRUGS (6)
  1. PALLADONE [Suspect]
     Indication: PAIN
     Dosage: 12 MG, Q24H, ORAL
     Route: 048
     Dates: start: 20050707, end: 20050719
  2. TIAZAC [Concomitant]
  3. SYNTHROID [Concomitant]
  4. ZETIA [Concomitant]
  5. NEURONTIN [Concomitant]
  6. MENEST ^MONARCH^ [Concomitant]

REACTIONS (9)
  - CONFUSIONAL STATE [None]
  - DEPRESSION [None]
  - DIARRHOEA [None]
  - DRUG WITHDRAWAL SYNDROME [None]
  - DYSPNOEA [None]
  - DYSURIA [None]
  - GASTROINTESTINAL DISORDER [None]
  - PANIC ATTACK [None]
  - PRURITUS [None]
